FAERS Safety Report 19594192 (Version 1)
Quarter: 2021Q3

REPORT INFORMATION
  Report Type: Spontaneous
  Country: FR (occurrence: FR)
  Receive Date: 20210722
  Receipt Date: 20210722
  Transmission Date: 20211014
  Serious: Yes (Other)
  Sender: FDA-Public Use
  Company Number: FR-STRIDES ARCOLAB LIMITED-2021SP025234

PATIENT
  Age: 70 Year
  Sex: Male

DRUGS (5)
  1. PREDNISOLONE. [Concomitant]
     Active Substance: PREDNISOLONE
     Indication: ENCEPHALOMYELITIS
     Dosage: 1 MILLIGRAM/KILOGRAM PER DAY
     Route: 065
  2. ALBENDAZOLE. [Suspect]
     Active Substance: ALBENDAZOLE
     Indication: ENCEPHALOMYELITIS
     Dosage: 800 MILLIGRAM PER DAY SCHEDULED TO BE ADMINISTERED OF 21?28 DAYS
     Route: 065
  3. ALBENDAZOLE. [Suspect]
     Active Substance: ALBENDAZOLE
     Indication: TOXOCARIASIS
     Dosage: UNK, RE?INITIATED ON HALF DOSE
     Route: 065
  4. PREDNISOLONE. [Concomitant]
     Active Substance: PREDNISOLONE
     Dosage: UNK, SIX MONTHS LATER, THE CORTICOSTEROID DOSE WAS INCREASED
     Route: 065
  5. PREDNISOLONE. [Concomitant]
     Active Substance: PREDNISOLONE
     Indication: TOXOCARIASIS
     Dosage: UNK, SLOWLY TAPERED
     Route: 065

REACTIONS (3)
  - Off label use [Unknown]
  - Cholestasis [Recovered/Resolved]
  - Hepatic cytolysis [Recovered/Resolved]
